FAERS Safety Report 13162034 (Version 1)
Quarter: 2017Q1

REPORT INFORMATION
  Report Type: Spontaneous
  Country: US (occurrence: US)
  Receive Date: 20170130
  Receipt Date: 20170130
  Transmission Date: 20170428
  Serious: No
  Sender: FDA-Public Use
  Company Number: US-PFIZER INC-2017036576

PATIENT
  Age: 55 Year
  Sex: Male
  Weight: 223 kg

DRUGS (9)
  1. VIAGRA [Suspect]
     Active Substance: SILDENAFIL CITRATE
     Indication: TESTICULAR DISORDER
     Dosage: 100 MG, AS NEEDED (QD PRN)
     Route: 048
  2. ANDROGEL [Concomitant]
     Active Substance: TESTOSTERONE
     Dosage: 20.25 MG, 1X/DAY (ACTUATION)
     Route: 062
  3. AMLODIPINE [Concomitant]
     Active Substance: AMLODIPINE BESYLATE
     Dosage: UNK
  4. CARVEDILOL. [Concomitant]
     Active Substance: CARVEDILOL
     Dosage: UNK
  5. ANDROGEL [Concomitant]
     Active Substance: TESTOSTERONE
     Indication: BLOOD TESTOSTERONE DECREASED
     Dosage: UNK UNK, WEEKLY (4-5 X PER WEEK)
     Route: 062
  6. ANDROGEL [Concomitant]
     Active Substance: TESTOSTERONE
     Dosage: 1.25 G, 1X/DAY (ACTUATION)
     Route: 062
  7. ANDROGEL [Concomitant]
     Active Substance: TESTOSTERONE
     Dosage: 1.62 %, 1X/DAY (TRANSDERMAL GEL)
     Route: 062
  8. VITAMIN D3 [Concomitant]
     Active Substance: CHOLECALCIFEROL
     Dosage: UNK
  9. VIAGRA [Suspect]
     Active Substance: SILDENAFIL CITRATE
     Indication: ERECTILE DYSFUNCTION
     Dosage: 50 MG, 1X/DAY
     Route: 048

REACTIONS (1)
  - Drug effect incomplete [Unknown]
